FAERS Safety Report 8438444-3 (Version None)
Quarter: 2012Q2

REPORT INFORMATION
  Report Type: 
  Country: None (occurrence: None)
  Receive Date: 20120614
  Receipt Date: 20120611
  Transmission Date: 20120825
  Serious: Yes (Death)
  Sender: FDA-Public Use
  Company Number: CHPA2012US012030

PATIENT
  Age: 72 Year
  Sex: Female

DRUGS (4)
  1. DRUG THERAPY NOS [Concomitant]
     Indication: BLOOD PRESSURE ABNORMAL
     Dosage: UNK, UNK
  2. HABITROL [Suspect]
     Indication: SMOKING CESSATION THERAPY
     Dosage: 7 MG, QD
     Route: 062
     Dates: end: 20110101
  3. HABITROL [Suspect]
     Dosage: 14 MG, QD
     Route: 062
  4. NICOTINE [Suspect]
     Indication: SMOKING CESSATION THERAPY
     Dosage: 21 MG, QD
     Route: 062

REACTIONS (3)
  - DEATH [None]
  - DRUG ADMINISTERED AT INAPPROPRIATE SITE [None]
  - APPLICATION SITE ERYTHEMA [None]
